FAERS Safety Report 7565044-X (Version None)
Quarter: 2011Q2

REPORT INFORMATION
  Report Type: 
  Country: None (occurrence: None)
  Receive Date: 20110622
  Receipt Date: 20110425
  Transmission Date: 20111010
  Serious: Yes (Other)
  Sender: FDA-Public Use
  Company Number: US-MYLANLABS-2011S1007671

PATIENT
  Age: 53 Year
  Sex: Female
  Weight: 83.46 kg

DRUGS (18)
  1. ALLOPURINOL [Concomitant]
     Route: 048
  2. OMEPRAZOLE [Concomitant]
     Route: 048
  3. GEMFIBROZIL [Concomitant]
     Route: 048
  4. HALOPERIDOL [Concomitant]
     Route: 048
  5. NAPROXEN [Concomitant]
     Route: 048
  6. TRAMADOL HCL [Concomitant]
     Route: 048
  7. CLOZAPINE [Suspect]
     Route: 048
     Dates: end: 20110404
  8. CLOZAPINE [Suspect]
     Indication: SCHIZOAFFECTIVE DISORDER
     Route: 048
     Dates: end: 20110404
  9. ASPIRIN [Concomitant]
     Route: 048
  10. FOLIC ACID [Concomitant]
     Route: 048
  11. POTASSIUM CHLORIDE [Concomitant]
     Route: 048
  12. SYNTHROID [Concomitant]
     Route: 048
  13. CLONAZEPAM [Concomitant]
     Route: 048
  14. SIMVASTATIN [Concomitant]
     Route: 048
  15. METFORMIN HCL [Concomitant]
     Route: 048
  16. HYDROXYCHLOROQUINE SULFATE [Concomitant]
     Route: 048
  17. VITAMIN B-12 [Concomitant]
     Route: 048
  18. CLOZAPINE [Suspect]
     Indication: BIPOLAR DISORDER
     Route: 048
     Dates: end: 20110404

REACTIONS (2)
  - LEUKOPENIA [None]
  - GRANULOCYTOPENIA [None]
